FAERS Safety Report 8948213 (Version 1)
Quarter: 2012Q4

REPORT INFORMATION
  Report Type: Spontaneous
  Country: US (occurrence: None)
  Receive Date: 20121203
  Receipt Date: 20121203
  Transmission Date: 20130627
  Serious: No
  Sender: FDA-Public Use
  Company Number: None

PATIENT
  Sex: Female

DRUGS (1)
  1. DIOVAN HCTZ [Suspect]
     Indication: HYPERTENSION

REACTIONS (2)
  - Adverse reaction [None]
  - Product substitution issue [None]
